FAERS Safety Report 6552199-9 (Version None)
Quarter: 2010Q1

REPORT INFORMATION
  Report Type: 
  Country: None (occurrence: None)
  Receive Date: 20100126
  Receipt Date: 20100105
  Transmission Date: 20100710
  Serious: Yes (Death)
  Sender: FDA-Public Use
  Company Number: US-MERCK-1001USA00912

PATIENT
  Age: 51 Year
  Sex: Female

DRUGS (11)
  1. VASOTEC [Suspect]
     Route: 048
  2. BETABLOK [Suspect]
     Route: 048
  3. BUPROPION HYDROCHLORIDE [Suspect]
     Route: 048
  4. ALPRAZOLAM [Suspect]
     Route: 048
  5. FLUOXETINE [Suspect]
     Route: 048
  6. ZESTRIL [Suspect]
     Route: 048
  7. ZOLPIDEM TARTRATE [Suspect]
     Route: 048
  8. FLEXERIL [Suspect]
     Route: 048
  9. GLIBENCLAMID [Suspect]
     Route: 048
  10. DICLOFENAC [Suspect]
     Route: 048
  11. LOVASTATIN [Suspect]
     Route: 048

REACTIONS (2)
  - COMPLETED SUICIDE [None]
  - DRUG TOXICITY [None]
